FAERS Safety Report 5849612-9 (Version None)
Quarter: 2008Q3

REPORT INFORMATION
  Report Type: 
  Country: None (occurrence: None)
  Receive Date: 20080819
  Receipt Date: 20080807
  Transmission Date: 20090109
  Serious: Yes (Other)
  Sender: FDA-Public Use
  Company Number: AT-ROCHE-580152

PATIENT
  Age: 60 Year
  Sex: Female

DRUGS (3)
  1. BONIVA [Suspect]
     Indication: DRUG USE FOR UNKNOWN INDICATION
     Dosage: STRENGTH OF THE FORMULATION : 3 MG/ 3 ML
     Route: 042
     Dates: start: 20080806, end: 20080806
  2. MAXI-KALZ [Concomitant]
     Route: 048
  3. CITALOPRAM HYDROBROMIDE [Concomitant]
     Dosage: STRENGTH AND FORMULATION : LOW DOSE
     Route: 048

REACTIONS (1)
  - VEIN DISORDER [None]
